FAERS Safety Report 25554200 (Version 1)
Quarter: 2025Q3

REPORT INFORMATION
  Report Type: Spontaneous
  Country: US (occurrence: US)
  Receive Date: 20250715
  Receipt Date: 20250715
  Transmission Date: 20251021
  Serious: Yes (Other)
  Sender: VIIV
  Company Number: US-VIIV HEALTHCARE-US2025AMR085114

PATIENT
  Sex: Male

DRUGS (2)
  1. TIVICAY [Suspect]
     Active Substance: DOLUTEGRAVIR SODIUM
     Indication: HIV infection
  2. TRUVADA [Suspect]
     Active Substance: EMTRICITABINE\TENOFOVIR DISOPROXIL FUMARATE
     Indication: HIV infection

REACTIONS (8)
  - Spinal column injury [Unknown]
  - Prerenal failure [Recovered/Resolved]
  - Hepatic failure [Unknown]
  - Vomiting [Recovered/Resolved]
  - Brain fog [Recovered/Resolved]
  - Fatigue [Recovered/Resolved]
  - Bone loss [Recovered/Resolved]
  - Nausea [Recovered/Resolved]
